FAERS Safety Report 11604864 (Version 3)
Quarter: 2016Q3

REPORT INFORMATION
  Report Type: Spontaneous
  Country: US (occurrence: US)
  Receive Date: 20151007
  Receipt Date: 20160805
  Transmission Date: 20161109
  Serious: Yes (Death, Other)
  Sender: FDA-Public Use
  Company Number: US-PFIZER INC-2015329683

PATIENT
  Age: 72 Year
  Sex: Female
  Weight: 86.18 kg

DRUGS (32)
  1. KLONOPIN [Concomitant]
     Active Substance: CLONAZEPAM
     Indication: NERVOUSNESS
     Dosage: 1 MG, 2X/DAY
     Route: 048
  2. SPIRIVA [Concomitant]
     Active Substance: TIOTROPIUM BROMIDE MONOHYDRATE
     Indication: CHRONIC OBSTRUCTIVE PULMONARY DISEASE
     Dosage: 18 MCG INHALATION CAPSULE, 1X/DAY
     Route: 055
  3. ZELIRIS [Concomitant]
     Indication: DYSPNOEA
     Dosage: 500 MCG, 1X/DAY
     Route: 048
  4. ASPIRIN. [Concomitant]
     Active Substance: ASPIRIN
     Indication: CARDIAC DISORDER
     Dosage: 81 MG, DAILY
     Route: 048
     Dates: start: 2008
  5. CLONIDINE HCL [Concomitant]
     Active Substance: CLONIDINE HYDROCHLORIDE
     Indication: DYSPNOEA
     Dosage: 0.1 MG, 3X/DAY
     Route: 048
  6. COLACE [Concomitant]
     Active Substance: DOCUSATE SODIUM
     Indication: CONSTIPATION
     Dosage: 100 MG, 2X/DAY
     Route: 048
     Dates: start: 2013
  7. HYDROCODONE/TYLENOL [Concomitant]
     Indication: ARTHRITIS
     Dosage: 1 TABLET EVERY 4 HRS
     Route: 048
     Dates: start: 2012
  8. PREDNISONE. [Concomitant]
     Active Substance: PREDNISONE
     Indication: LUNG DISORDER
     Dosage: 10 MG, 1X/DAY
     Route: 048
  9. NORMODYNE [Concomitant]
     Active Substance: LABETALOL HYDROCHLORIDE
     Indication: BLOOD PRESSURE ABNORMAL
     Dosage: 100 MG TABLET, TWO TABLETS, EVERY 12 HOURS
  10. ALDACTONE [Concomitant]
     Active Substance: SPIRONOLACTONE
     Indication: DYSPNOEA
     Dosage: 25 MG, 1X/DAY
     Route: 048
     Dates: start: 2014
  11. HYDROCODONE [Concomitant]
     Active Substance: HYDROCODONE
     Indication: PAIN
     Dosage: 10 MG, AS NEEDED (EVERY 2 HOURS)
     Dates: start: 2012
  12. REVATIO [Suspect]
     Active Substance: SILDENAFIL CITRATE
     Indication: LUNG DISORDER
     Dosage: 20 MG, 3X/DAY
     Route: 048
     Dates: start: 201101
  13. LIPITOR [Concomitant]
     Active Substance: ATORVASTATIN CALCIUM
     Indication: BLOOD CHOLESTEROL ABNORMAL
     Dosage: 40 MG, ONCE PER DAY AT BEDTIME
     Route: 048
     Dates: start: 2011
  14. KLOR-CON [Concomitant]
     Active Substance: POTASSIUM CHLORIDE
     Indication: BLOOD POTASSIUM DECREASED
     Dosage: 10 MEQ, 1X/DAY
     Route: 048
  15. K-DUR [Concomitant]
     Active Substance: POTASSIUM CHLORIDE
     Indication: BLOOD POTASSIUM
     Dosage: 10 MEQ, 1X/DAY
     Route: 048
  16. PROCARDIA XL [Concomitant]
     Active Substance: NIFEDIPINE
     Indication: CARDIAC DISORDER
     Dosage: 60 MG, DAILY
     Route: 048
     Dates: start: 2013
  17. ADVAIR DISKUS [Concomitant]
     Active Substance: FLUTICASONE PROPIONATE\SALMETEROL XINAFOATE
     Indication: DYSPNOEA
     Dosage: [FLUTICASONE 250 MCG]/[SALMETEROL 50 MCG] PER DOSE INHALER, 2X/DAY
     Route: 055
     Dates: start: 2011
  18. IRON [Concomitant]
     Active Substance: IRON
     Indication: BLOOD IRON DECREASED
     Dosage: 325 MG, 1X/DAY (325MG (65MG IRON) ONCE DAILY)
     Dates: start: 2012
  19. CYMBALTA [Concomitant]
     Active Substance: DULOXETINE HYDROCHLORIDE
     Indication: BACK DISORDER
     Dosage: 60 MG, 1X/DAY
     Route: 048
     Dates: start: 2013
  20. PROAIR HFA [Concomitant]
     Active Substance: ALBUTEROL SULFATE
     Indication: DYSPNOEA
     Dosage: 90 MCG PER ACTUATION INHALER, TAKES TWO PUFFS, EVERY 4 HRS
     Route: 055
     Dates: start: 2012
  21. ALBUTEROL NEBULIZER [Concomitant]
     Active Substance: ALBUTEROL
     Indication: DYSPNOEA
     Dosage: 2.5 MG/3ML, EVERY 4 HRS
     Dates: start: 2011
  22. DALIRESP [Concomitant]
     Active Substance: ROFLUMILAST
     Indication: RENAL DISORDER
     Dosage: 500 UG, DAILY
     Dates: start: 2014
  23. LABETALOL [Concomitant]
     Active Substance: LABETALOL\LABETALOL HYDROCHLORIDE
     Dosage: 200 MG, UNK (100MG 2 TABLETS EVERY 12 HOURS)
     Dates: start: 2014
  24. BABY ASPIRIN [Concomitant]
     Active Substance: ASPIRIN
     Indication: CARDIAC DISORDER
     Dosage: 81 MG, 1X/DAY
     Dates: start: 2008
  25. REVATIO [Suspect]
     Active Substance: SILDENAFIL CITRATE
     Indication: PULMONARY HYPERTENSION
  26. SPIRIVA [Concomitant]
     Active Substance: TIOTROPIUM BROMIDE MONOHYDRATE
     Indication: PULMONARY HYPERTENSION
     Dosage: 18 UG, 2X/DAY
     Route: 055
     Dates: start: 2012
  27. ASPIRIN. [Concomitant]
     Active Substance: ASPIRIN
     Indication: POOR PERIPHERAL CIRCULATION
  28. CALCIUM + VIT D [Concomitant]
     Active Substance: CALCIUM\VITAMIN D
     Indication: BLOOD CALCIUM DECREASED
     Dosage: 2 DF, DAILY  (600MG CALCIUM + D (600MG, 1500/400UNIT TABLET; 2 TABLETS)
     Route: 048
     Dates: start: 2013
  29. KLONOPIN [Concomitant]
     Active Substance: CLONAZEPAM
     Dosage: 1 MG, 3X/DAY
     Dates: start: 2012
  30. SPIRIVA [Concomitant]
     Active Substance: TIOTROPIUM BROMIDE MONOHYDRATE
     Indication: DYSPNOEA
  31. LASIX [Concomitant]
     Active Substance: FUROSEMIDE
     Indication: FLUID RETENTION
     Dosage: 40 MG, 2X/DAY
     Route: 048
     Dates: start: 2011
  32. POTASSIUM CHLORIDE. [Concomitant]
     Active Substance: POTASSIUM CHLORIDE
     Indication: BLOOD POTASSIUM DECREASED
     Dosage: 10 MEQ, DAILY
     Dates: start: 2013

REACTIONS (15)
  - Condition aggravated [Not Recovered/Not Resolved]
  - Vitamin D decreased [Unknown]
  - Chronic obstructive pulmonary disease [Fatal]
  - Pain in extremity [Unknown]
  - Abasia [Unknown]
  - Blood iron decreased [Unknown]
  - Lung disorder [Not Recovered/Not Resolved]
  - Arthritis [Not Recovered/Not Resolved]
  - Malaise [Unknown]
  - Blood potassium decreased [Unknown]
  - Condition aggravated [Fatal]
  - Dyspnoea [Unknown]
  - Abasia [Not Recovered/Not Resolved]
  - Peripheral swelling [Unknown]
  - Blood calcium decreased [Unknown]

NARRATIVE: CASE EVENT DATE: 2012
